FAERS Safety Report 10377120 (Version 3)
Quarter: 2015Q2

REPORT INFORMATION
  Report Type: Report from Study
  Country: US (occurrence: US)
  Receive Date: 20140812
  Receipt Date: 20150626
  Transmission Date: 20150821
  Serious: Yes (Hospitalization)
  Sender: FDA-Public Use
  Company Number: US-UCBSA-2014007928

PATIENT
  Age: 61 Year
  Sex: Female
  Weight: 66.7 kg

DRUGS (6)
  1. CERTOLIZUMAB PEGOL [Suspect]
     Active Substance: CERTOLIZUMAB PEGOL
     Indication: LUNG NEOPLASM MALIGNANT
     Dosage: DOSE: 200 MG
     Route: 058
     Dates: start: 20140710, end: 20141106
  2. CISPLATIN. [Concomitant]
     Active Substance: CISPLATIN
     Dosage: UNK
     Dates: start: 20140710
  3. ALPRAZOLAM. [Concomitant]
     Active Substance: ALPRAZOLAM
     Indication: SLEEP DISORDER
     Dosage: 0.25 MG, ONCE DAILY (QD)
     Route: 048
     Dates: start: 20140506
  4. PEMETREXED [Concomitant]
     Active Substance: PEMETREXED
     Dosage: UNK
     Dates: start: 20140710
  5. AZITHROMYCIN [Concomitant]
     Active Substance: AZITHROMYCIN ANHYDROUS
     Indication: PRODUCT USED FOR UNKNOWN INDICATION
     Dosage: 250 MG, ONCE DAILY (QD)
     Route: 048
     Dates: end: 20140911
  6. FOLIC ACID. [Concomitant]
     Active Substance: FOLIC ACID
     Indication: PRODUCT USED FOR UNKNOWN INDICATION
     Dosage: 1 MG, ONCE DAILY (QD)
     Route: 048
     Dates: start: 20140708

REACTIONS (1)
  - Skin infection [Recovered/Resolved]

NARRATIVE: CASE EVENT DATE: 20140726
